FAERS Safety Report 22541725 (Version 1)
Quarter: 2023Q2

REPORT INFORMATION
  Report Type: Spontaneous
  Country: CN (occurrence: CN)
  Receive Date: 20230609
  Receipt Date: 20230609
  Transmission Date: 20230722
  Serious: Yes (Disabling)
  Sender: FDA-Public Use
  Company Number: CN-ELI_LILLY_AND_COMPANY-CN202306001990

PATIENT
  Age: 52 Year
  Sex: Female
  Weight: 65 kg

DRUGS (12)
  1. GEMCITABINE HYDROCHLORIDE [Suspect]
     Active Substance: GEMCITABINE HYDROCHLORIDE
     Indication: Ovarian cancer
     Dosage: 1.6 G, WEEKLY (1/W)
     Route: 041
     Dates: start: 20230114
  2. GEMCITABINE HYDROCHLORIDE [Suspect]
     Active Substance: GEMCITABINE HYDROCHLORIDE
     Dosage: 1.6 G, WEEKLY (1/W)
     Route: 041
     Dates: start: 20230205
  3. BEVACIZUMAB [Suspect]
     Active Substance: BEVACIZUMAB
     Indication: Ovarian cancer
     Dosage: 0.5 G, SINGLE
     Route: 041
     Dates: start: 20230114
  4. BEVACIZUMAB [Suspect]
     Active Substance: BEVACIZUMAB
     Dosage: 0.5 G, SINGLE
     Route: 041
     Dates: start: 20230205
  5. CISPLATIN [Suspect]
     Active Substance: CISPLATIN
     Indication: Ovarian cancer
     Dosage: 40 MG, SINGLE
     Dates: start: 20230114
  6. CISPLATIN [Suspect]
     Active Substance: CISPLATIN
     Dosage: 40 MG, SINGLE
     Dates: start: 20230205
  7. SODIUM CHLORIDE [Concomitant]
     Active Substance: SODIUM CHLORIDE
     Indication: Ovarian cancer
     Dosage: 250 MG, SINGLE
     Route: 041
     Dates: start: 20230114
  8. SODIUM CHLORIDE [Concomitant]
     Active Substance: SODIUM CHLORIDE
     Dosage: 500 MG, SINGLE
     Route: 041
     Dates: start: 20230114
  9. SODIUM CHLORIDE [Concomitant]
     Active Substance: SODIUM CHLORIDE
     Dosage: 100 MG, SINGLE
     Route: 041
     Dates: start: 20230114
  10. SODIUM CHLORIDE [Concomitant]
     Active Substance: SODIUM CHLORIDE
     Dosage: 250 MG, SINGLE
     Route: 041
     Dates: start: 20230205
  11. SODIUM CHLORIDE [Concomitant]
     Active Substance: SODIUM CHLORIDE
     Dosage: 500 MG, SINGLE
     Route: 041
     Dates: start: 20230205
  12. SODIUM CHLORIDE [Concomitant]
     Active Substance: SODIUM CHLORIDE
     Dosage: 100 MG, SINGLE
     Route: 041
     Dates: start: 20230205

REACTIONS (3)
  - Ecchymosis [Recovering/Resolving]
  - Epistaxis [Recovering/Resolving]
  - Myelosuppression [Recovering/Resolving]

NARRATIVE: CASE EVENT DATE: 20230220
